FAERS Safety Report 16667615 (Version 3)
Quarter: 2019Q4

REPORT INFORMATION
  Report Type: Spontaneous
  Country: JP (occurrence: JP)
  Receive Date: 20190805
  Receipt Date: 20191023
  Transmission Date: 20200122
  Serious: Yes (Death)
  Sender: FDA-Public Use
  Company Number: JP-CELGENEUS-JPN-20190711266

PATIENT
  Age: 71 Year
  Sex: Female

DRUGS (1)
  1. REVLIMID [Suspect]
     Active Substance: LENALIDOMIDE
     Indication: ADULT T-CELL LYMPHOMA/LEUKAEMIA
     Route: 048
     Dates: start: 20181105, end: 20181203

REACTIONS (2)
  - Adult T-cell lymphoma/leukaemia [Fatal]
  - Therapy non-responder [Unknown]

NARRATIVE: CASE EVENT DATE: 201812
